FAERS Safety Report 11088603 (Version 1)
Quarter: 2015Q2

REPORT INFORMATION
  Report Type: Spontaneous
  Country: BR (occurrence: BR)
  Receive Date: 20150504
  Receipt Date: 20150504
  Transmission Date: 20150821
  Serious: Yes (Hospitalization, Other)
  Sender: FDA-Public Use
  Company Number: BR-GLAXOSMITHKLINE-BR2015GSK059199

PATIENT
  Sex: Female
  Weight: 84 kg

DRUGS (1)
  1. AEROLIN [Suspect]
     Active Substance: ALBUTEROL
     Indication: RESPIRATORY DISORDER

REACTIONS (4)
  - Respiratory disorder [Unknown]
  - Drug ineffective [Unknown]
  - Emphysema [Unknown]
  - Pneumonia [Unknown]

NARRATIVE: CASE EVENT DATE: 2004
